FAERS Safety Report 5803303-9 (Version None)
Quarter: 2008Q3

REPORT INFORMATION
  Report Type: 
  Country: None (occurrence: None)
  Receive Date: 20080708
  Receipt Date: 20080630
  Transmission Date: 20090109
  Serious: Yes (Hospitalization)
  Sender: FDA-Public Use
  Company Number: B0526204A

PATIENT
  Age: 17 Year
  Sex: Female

DRUGS (2)
  1. LEXIVA [Suspect]
     Indication: HIV INFECTION
     Dosage: 2TAB PER DAY
     Route: 048
     Dates: start: 20020915
  2. RITONAVIR [Suspect]
     Indication: HIV INFECTION
     Dosage: 2CAP PER DAY
     Route: 048
     Dates: start: 20020915

REACTIONS (3)
  - BENIGN SALIVARY GLAND NEOPLASM [None]
  - COMPUTERISED TOMOGRAM ABNORMAL [None]
  - NECK MASS [None]
